FAERS Safety Report 10986050 (Version 1)
Quarter: 2015Q1

REPORT INFORMATION
  Report Type: Spontaneous
  Country: US (occurrence: None)
  Receive Date: 20150309
  Receipt Date: 20150309
  Transmission Date: 20150721
  Serious: Yes (Hospitalization)
  Sender: FDA-Public Use
  Company Number: HYP201501-000007

PATIENT
  Age: 68 Year
  Sex: Male
  Weight: 136.5 kg

DRUGS (9)
  1. ZESTRIL (LISINOPRIL) [Concomitant]
  2. VITAMIN B-12 (CYANOCOBALAMIN) [Concomitant]
  3. LASIX [Concomitant]
     Active Substance: FUROSEMIDE
  4. POTASSIUM CHLORIDE. [Concomitant]
     Active Substance: POTASSIUM CHLORIDE
  5. VITAMIN C [Concomitant]
     Active Substance: ASCORBIC ACID
  6. TYLENOL [Concomitant]
     Active Substance: ACETAMINOPHEN
  7. CALCIUM CARBONATE. [Concomitant]
     Active Substance: CALCIUM CARBONATE
  8. CITRULLINE [Concomitant]
     Active Substance: CITRULLINE
  9. RAVICTI [Suspect]
     Active Substance: GLYCEROL PHENYLBUTYRATE
     Indication: AMINO ACID METABOLISM DISORDER
     Dates: start: 20130912

REACTIONS (3)
  - Hyperammonaemic crisis [None]
  - Confusional state [None]
  - Diarrhoea [None]

NARRATIVE: CASE EVENT DATE: 20141218
